FAERS Safety Report 26045246 (Version 1)
Quarter: 2025Q4

REPORT INFORMATION
  Report Type: Spontaneous
  Country: US (occurrence: US)
  Receive Date: 20251114
  Receipt Date: 20251114
  Transmission Date: 20260117
  Serious: No
  Sender: AMNEAL
  Company Number: US-AMNEAL PHARMACEUTICALS-2025-AMRX-03463

PATIENT
  Age: 36 Year
  Sex: Male
  Weight: 149.66 kg

DRUGS (1)
  1. PALIPERIDONE [Suspect]
     Active Substance: PALIPERIDONE
     Indication: Product used for unknown indication
     Dosage: 1.5MG, 1 TABLETS, 1 /DAY
     Route: 048
     Dates: end: 202508

REACTIONS (6)
  - Gait inability [Recovered/Resolved]
  - Mental impairment [Unknown]
  - Aggression [Recovered/Resolved]
  - Thinking abnormal [Recovered/Resolved]
  - Abdominal pain upper [Recovered/Resolved]
  - Product quality issue [Unknown]

NARRATIVE: CASE EVENT DATE: 20250701
